FAERS Safety Report 19804567 (Version 1)
Quarter: 2021Q3

REPORT INFORMATION
  Report Type: Spontaneous
  Country: IT (occurrence: IT)
  Receive Date: 20210908
  Receipt Date: 20210908
  Transmission Date: 20211014
  Serious: Yes (Hospitalization)
  Sender: FDA-Public Use
  Company Number: IT-PFIZER INC-202101114435

PATIENT
  Age: 55 Year
  Sex: Male

DRUGS (6)
  1. LYRICA [Concomitant]
     Active Substance: PREGABALIN
     Dosage: UNK
  2. ZYLORIC [Concomitant]
     Active Substance: ALLOPURINOL
     Dosage: UNK
  3. CARDICOR [Concomitant]
     Active Substance: BISOPROLOL
     Dosage: UNK
  4. INLYTA [Suspect]
     Active Substance: AXITINIB
     Indication: RENAL CANCER
     Dosage: 10 MG, 1X/DAY
     Route: 048
     Dates: start: 20210407, end: 20210702
  5. PLAUNAC [Concomitant]
     Active Substance: OLMESARTAN MEDOXOMIL
     Dosage: UNK
  6. PALEXIA [Concomitant]
     Active Substance: TAPENTADOL HYDROCHLORIDE
     Dosage: UNK

REACTIONS (3)
  - Pyrexia [Recovering/Resolving]
  - Dyspnoea [Recovering/Resolving]
  - Pulmonary embolism [Recovering/Resolving]

NARRATIVE: CASE EVENT DATE: 20210702
